FAERS Safety Report 19032126 (Version 1)
Quarter: 2021Q1

REPORT INFORMATION
  Report Type: Report from Study
  Country: US (occurrence: US)
  Receive Date: 20210319
  Receipt Date: 20210319
  Transmission Date: 20210420
  Serious: Yes (Hospitalization, Other)
  Sender: FDA-Public Use
  Company Number: US-TAKEDA-ALL1-2011-01176

PATIENT
  Age: 1 Year
  Sex: Male
  Weight: 18 kg

DRUGS (3)
  1. IDURSULFASE [Suspect]
     Active Substance: IDURSULFASE
     Indication: MUCOPOLYSACCHARIDOSIS II
     Dosage: VIAL
     Route: 042
     Dates: start: 20101027, end: 20210119
  2. IDURSULFASE [Suspect]
     Active Substance: IDURSULFASE
     Dosage: 0.79 MG/KG, 1X/WEEK
     Route: 041
     Dates: start: 20100928
  3. IDURSULFASE [Suspect]
     Active Substance: IDURSULFASE
     Dosage: 0.67 MG/KG, 1X/WEEK
     Route: 041
     Dates: start: 20110607

REACTIONS (2)
  - Spinal osteoarthritis [Recovered/Resolved]
  - Inappropriate schedule of product administration [Unknown]

NARRATIVE: CASE EVENT DATE: 20101027
